FAERS Safety Report 5361141-8 (Version None)
Quarter: 2007Q2

REPORT INFORMATION
  Report Type: 
  Country: None (occurrence: None)
  Receive Date: 20070614
  Receipt Date: 20070530
  Transmission Date: 20071010
  Serious: Yes (Life-Threatening, Hospitalization)
  Sender: FDA-Public Use
  Company Number: SP00091

PATIENT
  Age: 31 Year
  Sex: Male

DRUGS (3)
  1. COLAZAL [Suspect]
     Indication: PROCTOCOLITIS
     Dosage: 3 GR/DAY, ORAL
     Route: 048
     Dates: start: 20030207, end: 20030211
  2. SULFASALAZINE [Suspect]
     Indication: PROCTOCOLITIS
     Dates: start: 20030101, end: 20030122
  3. PREDNISONE TAB [Concomitant]

REACTIONS (4)
  - ACUTE RESPIRATORY FAILURE [None]
  - ANGIOEDEMA [None]
  - DYSPHAGIA [None]
  - TOXIC EPIDERMAL NECROLYSIS [None]
